FAERS Safety Report 8232926-5 (Version None)
Quarter: 2012Q1

REPORT INFORMATION
  Report Type: 
  Country: None (occurrence: None)
  Receive Date: 20120325
  Receipt Date: 20120314
  Transmission Date: 20120608
  Serious: Yes (Hospitalization, Other)
  Sender: FDA-Public Use
  Company Number: US-VERTEX PHARMACEUTICALS INC.-AE-2012-003713

PATIENT
  Sex: Female
  Weight: 113.5 kg

DRUGS (7)
  1. COPEGUS [Concomitant]
     Indication: HEPATITIS C
     Route: 048
     Dates: start: 20120202
  2. WELLBUTRIN [Concomitant]
     Indication: DEPRESSION
     Route: 048
  3. PROCARDIA [Concomitant]
     Indication: HYPERTENSION
     Route: 048
  4. INCIVEK [Suspect]
     Indication: HEPATITIS C
     Route: 048
     Dates: start: 20120202
  5. PEGASYS [Concomitant]
     Indication: HEPATITIS C
     Route: 058
     Dates: start: 20120202
  6. PANTOPRAZOLE [Concomitant]
     Indication: GASTROOESOPHAGEAL REFLUX DISEASE
     Route: 048
  7. ASPIRIN [Concomitant]
     Route: 048

REACTIONS (6)
  - OEDEMA PERIPHERAL [None]
  - ERUCTATION [None]
  - DYSPNOEA [None]
  - PNEUMONIA [None]
  - NAUSEA [None]
  - DYSPHAGIA [None]
